FAERS Safety Report 7773107-9 (Version None)
Quarter: 2011Q3

REPORT INFORMATION
  Report Type: 
  Country: None (occurrence: None)
  Receive Date: 20110922
  Receipt Date: 20100412
  Transmission Date: 20111222
  Serious: No
  Sender: FDA-Public Use
  Company Number: US-ASTRAZENECA-2009SE12498

PATIENT
  Age: 11638 Day
  Sex: Female

DRUGS (12)
  1. RISPERDAL [Concomitant]
     Dates: start: 20070716, end: 20071213
  2. INVEGA [Concomitant]
     Dates: start: 20071213
  3. INVEGA [Concomitant]
     Dates: start: 20080620
  4. SEROQUEL [Suspect]
     Route: 048
     Dates: start: 20070507
  5. METFORMIN [Concomitant]
     Indication: WEIGHT CONTROL
     Dates: start: 20080620
  6. SEROQUEL [Suspect]
     Route: 048
     Dates: start: 20070716
  7. SEROQUEL [Suspect]
     Route: 048
     Dates: start: 20071213, end: 20080620
  8. ZOLOFT [Concomitant]
     Dosage: 100 MG 1/2 QAM UNTIL GONE
     Dates: start: 20070507
  9. REQUIP [Concomitant]
     Indication: RESTLESS LEGS SYNDROME
     Dosage: 0.25 MG AT BEDTIME FOR 2 DAYS, 0.5 MG AT BEDTIME FOR 5 DYS, 1 MG AT BEDTIME FOR 7 DAYS, 2 MG AT BEDT
     Dates: start: 20080620
  10. TRAZODONE HYDROCHLORIDE [Concomitant]
     Indication: SLEEP DISORDER
     Dosage: 100 MG 1 TO 2 AT BEDTIME AS NEEDED
     Dates: start: 20071213
  11. RISPERDAL [Concomitant]
     Dates: start: 20070507
  12. TRAZODONE HYDROCHLORIDE [Concomitant]
     Dosage: 100 MG 1 TO 2 AT BEDTIME AS NEEDED
     Dates: start: 20080620

REACTIONS (1)
  - GESTATIONAL DIABETES [None]
